FAERS Safety Report 7358493-6 (Version None)
Quarter: 2011Q1

REPORT INFORMATION
  Report Type: 
  Country: None (occurrence: None)
  Receive Date: 20110317
  Receipt Date: 20110303
  Transmission Date: 20110831
  Serious: Yes (Other)
  Sender: FDA-Public Use
  Company Number: TR-WATSON-2011-02652

PATIENT
  Age: 21 Year
  Sex: Male

DRUGS (3)
  1. PREDNISONE [Suspect]
     Indication: BEHCET'S SYNDROME
     Dosage: UNK
  2. AZATHIOPRINE [Suspect]
     Indication: BEHCET'S SYNDROME
     Dosage: UNK
  3. ACETAZOLAMIDE [Suspect]
     Indication: BEHCET'S SYNDROME
     Dosage: UNK

REACTIONS (2)
  - BEHCET'S SYNDROME [None]
  - INTRACRANIAL PRESSURE INCREASED [None]
